FAERS Safety Report 17129399 (Version 1)
Quarter: 2019Q4

REPORT INFORMATION
  Report Type: Spontaneous
  Country: US (occurrence: US)
  Receive Date: 20191209
  Receipt Date: 20191209
  Transmission Date: 20200122
  Serious: No
  Sender: FDA-Public Use
  Company Number: US-PFIZER INC-2019527555

PATIENT
  Age: 69 Year
  Sex: Male

DRUGS (1)
  1. INLYTA [Suspect]
     Active Substance: AXITINIB
     Dosage: 10 MG, UNK

REACTIONS (4)
  - Lung disorder [Recovering/Resolving]
  - Neoplasm progression [Unknown]
  - Lymphadenopathy mediastinal [Unknown]
  - Diarrhoea [Unknown]
